FAERS Safety Report 8921358 (Version 2)
Quarter: 2012Q4

REPORT INFORMATION
  Report Type: 
  Country: US (occurrence: US)
  Receive Date: 20121122
  Receipt Date: 20121128
  Transmission Date: 20130627
  Serious: Yes (Hospitalization)
  Sender: FDA-Public Use
  Company Number: PHHY2012US105060

PATIENT
  Age: 74 Year
  Sex: Female

DRUGS (1)
  1. MIDODRINE [Suspect]
     Indication: HYPOTENSION
     Route: 048

REACTIONS (4)
  - Stress cardiomyopathy [Recovered/Resolved]
  - Angina pectoris [Recovered/Resolved]
  - Electrocardiogram ST segment elevation [Recovered/Resolved]
  - Akinesia [Recovered/Resolved]
